FAERS Safety Report 6361967-8 (Version None)
Quarter: 2009Q3

REPORT INFORMATION
  Report Type: 
  Country: None (occurrence: None)
  Receive Date: 20090918
  Receipt Date: 20090901
  Transmission Date: 20100115
  Serious: Yes (Hospitalization)
  Sender: FDA-Public Use
  Company Number: NL-CELGENEUS-114-50794-09091284

PATIENT
  Sex: Male

DRUGS (1)
  1. VIDAZA [Suspect]
     Route: 058

REACTIONS (4)
  - ABDOMINAL PAIN [None]
  - ANAL FISSURE [None]
  - CONSTIPATION [None]
  - GENERAL PHYSICAL HEALTH DETERIORATION [None]
